FAERS Safety Report 8346728-2 (Version None)
Quarter: 2012Q2

REPORT INFORMATION
  Report Type: 
  Country: None (occurrence: None)
  Receive Date: 20120509
  Receipt Date: 20120504
  Transmission Date: 20120825
  Serious: Yes (Other)
  Sender: FDA-Public Use
  Company Number: US-SANOFI-AVENTIS-2012SA032157

PATIENT
  Age: 9 Year
  Sex: Male

DRUGS (2)
  1. TRETINOIN [Concomitant]
     Dosage: FOR TWO WEEKS
  2. TAXOTERE [Suspect]
     Dosage: DOSE AND FREQUENCY: 3 DOSES OF 115 MG MONTHLY
     Route: 042

REACTIONS (4)
  - CAPILLARY DISORDER [None]
  - OEDEMA PERIPHERAL [None]
  - SKIN EXFOLIATION [None]
  - WEIGHT INCREASED [None]
